FAERS Safety Report 12678688 (Version 1)
Quarter: 2016Q3

REPORT INFORMATION
  Report Type: Report from Study
  Country: US (occurrence: US)
  Receive Date: 20160823
  Receipt Date: 20160823
  Transmission Date: 20161109
  Serious: No
  Sender: FDA-Public Use
  Company Number: US-AMGEN-USASL2016105713

PATIENT
  Age: 62 Year
  Sex: Female

DRUGS (3)
  1. ENBREL [Suspect]
     Active Substance: ETANERCEPT
     Indication: PSORIATIC ARTHROPATHY
     Dosage: 50 MG, QWK
     Route: 065
     Dates: start: 201605
  2. CLARITIN [Suspect]
     Active Substance: LORATADINE
     Indication: INJECTION SITE PRURITUS
     Dosage: 24 HOUR PILL
     Route: 065
     Dates: start: 2016
  3. CLARITIN [Suspect]
     Active Substance: LORATADINE
     Indication: INJECTION SITE SWELLING

REACTIONS (4)
  - Decreased immune responsiveness [Unknown]
  - Injection site pruritus [Unknown]
  - Injection site swelling [Unknown]
  - Vulvovaginal mycotic infection [Recovered/Resolved]

NARRATIVE: CASE EVENT DATE: 2016
